FAERS Safety Report 18628340 (Version 1)
Quarter: 2020Q4

REPORT INFORMATION
  Report Type: Spontaneous
  Country: US (occurrence: US)
  Receive Date: 20201217
  Receipt Date: 20201217
  Transmission Date: 20210114
  Serious: Yes (Other)
  Sender: FDA-Public Use
  Company Number: US-TEVA-2020-US-1859135

PATIENT
  Sex: Female

DRUGS (4)
  1. TORSEMIDE. [Suspect]
     Active Substance: TORSEMIDE
     Dosage: 20 MILLIGRAM DAILY;
     Route: 065
  2. ATORVASTATIN [Concomitant]
     Active Substance: ATORVASTATIN
     Dosage: 80 MILLIGRAM DAILY;
  3. AMIODARONE [Concomitant]
     Active Substance: AMIODARONE
     Dosage: 200 MILLIGRAM DAILY;
  4. APIXABAN [Concomitant]
     Active Substance: APIXABAN
     Dosage: 5 MILLIGRAM DAILY;

REACTIONS (1)
  - Asthenia [Unknown]
